FAERS Safety Report 11849562 (Version 1)
Quarter: 2015Q4

REPORT INFORMATION
  Report Type: Spontaneous
  Country: None (occurrence: None)
  Receive Date: 20151217
  Receipt Date: 20151217
  Transmission Date: 20160305
  Serious: No
  Sender: FDA-Public Use
  Company Number: None

PATIENT
  Age: 42 Year
  Sex: Male
  Weight: 163.3 kg

DRUGS (1)
  1. HYDROCODONE [Suspect]
     Active Substance: HYDROCODONE
     Dosage: 1 PILL
     Route: 048

REACTIONS (2)
  - Drug ineffective [None]
  - Product quality issue [None]

NARRATIVE: CASE EVENT DATE: 20151214
